FAERS Safety Report 6144948-9 (Version None)
Quarter: 2009Q2

REPORT INFORMATION
  Report Type: 
  Country: None (occurrence: None)
  Receive Date: 20090406
  Receipt Date: 20090326
  Transmission Date: 20091009
  Serious: Yes (Life-Threatening, Hospitalization)
  Sender: FDA-Public Use
  Company Number: BR-B.I. PHARMACEUTICALS,INC./RIDGEFIELD-2009-DE-02655GD

PATIENT
  Age: 61 Year
  Sex: Female
  Weight: 65 kg

DRUGS (14)
  1. CLONIDINE [Suspect]
     Dosage: 1 MCG/KG (65 MCG)
  2. DIPYRONE [Suspect]
     Dosage: 2G
  3. ROPIVACAINE [Suspect]
     Indication: NEUROMUSCULAR BLOCKING THERAPY
     Dosage: 20 ML OF 1%
  4. FENTANYL-25 [Suspect]
     Indication: INDUCTION OF ANAESTHESIA
     Dosage: 1 MCG/KG (65 MCG)
  5. FENTANYL-25 [Suspect]
     Dosage: 3.8 MCG/KG (247 MCG)
  6. PROPOFOL [Suspect]
     Indication: INDUCTION OF ANAESTHESIA
     Dosage: 1.9 MCG/KG (123.5 MCG)
  7. PROPOFOL [Suspect]
     Dosage: 2 MG/KG (130 MG)
  8. ROCURONIUM BROMIDE [Suspect]
     Indication: INDUCTION OF ANAESTHESIA
     Dosage: 0.76 MCG/KG (49.4 MCG)
  9. SEVOFLURANE [Suspect]
     Indication: MAINTENANCE OF ANAESTHESIA
  10. DEXAMETHASONE [Suspect]
     Dosage: 10MG
  11. ONDANSETRON [Suspect]
     Dosage: 4MG
  12. KETOPROFEN [Suspect]
     Dosage: 100MG
  13. NEOSTIGMINE [Concomitant]
     Dosage: 46.2 MCG/KG (3 MG)
  14. ATROPINE [Concomitant]
     Dosage: 23.1 MCG/KG (1.5 MG)

REACTIONS (11)
  - ATELECTASIS [None]
  - CARDIAC ARREST [None]
  - HYPERCAPNIA [None]
  - HYPERTENSION [None]
  - HYPOTENSION [None]
  - NEUROMUSCULAR BLOCK PROLONGED [None]
  - RESPIRATORY ACIDOSIS [None]
  - RESPIRATORY FAILURE [None]
  - SOMNOLENCE [None]
  - STRESS CARDIOMYOPATHY [None]
  - TACHYCARDIA [None]
